FAERS Safety Report 5810472-3 (Version None)
Quarter: 2008Q3

REPORT INFORMATION
  Report Type: 
  Country: None (occurrence: None)
  Receive Date: 20080715
  Receipt Date: 20080707
  Transmission Date: 20090109
  Serious: Yes (Death)
  Sender: FDA-Public Use
  Company Number: NZ-SANOFI-SYNTHELABO-A01200807755

PATIENT
  Sex: Female

DRUGS (5)
  1. SEDATIVES (NOS) [Interacting]
     Indication: DRUG USE FOR UNKNOWN INDICATION
  2. ANTIDEPRESSANTS (NOS) [Interacting]
     Indication: DRUG USE FOR UNKNOWN INDICATION
     Dosage: UNK
     Route: 065
  3. SEDATIVE (NOS) [Concomitant]
  4. ANTIDEPRESSANTS (NOS) [Concomitant]
  5. PLAQUENIL [Suspect]
     Indication: OSTEOARTHRITIS
     Dosage: UNK
     Route: 065

REACTIONS (4)
  - CONVULSION [None]
  - DRUG INTERACTION [None]
  - HEPATIC ENZYME ABNORMAL [None]
  - OVERDOSE [None]
